FAERS Safety Report 16940849 (Version 2)
Quarter: 2019Q4

REPORT INFORMATION
  Report Type: Spontaneous
  Country: US (occurrence: US)
  Receive Date: 20191021
  Receipt Date: 20191024
  Transmission Date: 20200122
  Serious: Yes (Disabling, Other)
  Sender: FDA-Public Use
  Company Number: US-PFIZER INC-2019452196

PATIENT
  Age: 77 Year
  Sex: Male

DRUGS (3)
  1. IBUPROFEN. [Concomitant]
     Active Substance: IBUPROFEN
     Indication: ARTHRALGIA
     Dosage: 600 MG, AS NEEDED [600MG, 1 TABLET BY MOUTH EVERY 6-8 HOURS AS NEEDED]
     Dates: start: 2019
  2. ZYVOX [Suspect]
     Active Substance: LINEZOLID
     Indication: URINARY TRACT INFECTION
  3. ZYVOX [Suspect]
     Active Substance: LINEZOLID
     Indication: STAPHYLOCOCCAL INFECTION
     Dosage: 600 MG, 2X/DAY [600MG, 1 TABLET BY MOUTH TWICE DAILY]
     Route: 048
     Dates: start: 201910, end: 20191014

REACTIONS (1)
  - Pseudobulbar palsy [Not Recovered/Not Resolved]

NARRATIVE: CASE EVENT DATE: 201910
